FAERS Safety Report 4598248-9 (Version None)
Quarter: 2005Q1

REPORT INFORMATION
  Report Type: 
  Country: None (occurrence: None)
  Receive Date: 20050302
  Receipt Date: 20050215
  Transmission Date: 20050727
  Serious: Yes (Death, Hospitalization, Other)
  Sender: FDA-Public Use
  Company Number: 2005BI003424

PATIENT
  Age: 46 Year
  Sex: Female

DRUGS (10)
  1. NATALIZUMAB [Suspect]
     Indication: MULTIPLE SCLEROSIS
     Dosage: 300 MG;QM;IV
     Route: 042
     Dates: start: 20020227, end: 20050118
  2. VITAMIN C [Concomitant]
  3. ZANTAC [Concomitant]
  4. ADVIL [Concomitant]
  5. AMBIEN [Concomitant]
  6. ARICEPT [Concomitant]
  7. ZANAFLEX [Concomitant]
  8. VITAMIN E [Concomitant]
  9. VITAMIN B COMPLEX CAP [Concomitant]
  10. AVONEX [Concomitant]

REACTIONS (7)
  - COMA [None]
  - CSF VIRUS IDENTIFIED [None]
  - DECEREBRATION [None]
  - JC VIRUS INFECTION [None]
  - MULTIPLE SCLEROSIS RELAPSE [None]
  - PROGRESSIVE MULTIFOCAL LEUKOENCEPHALOPATHY [None]
  - WHITE BLOOD CELL COUNT INCREASED [None]
